FAERS Safety Report 10248229 (Version 1)
Quarter: 2014Q2

REPORT INFORMATION
  Report Type: Spontaneous
  Country: RO (occurrence: RO)
  Receive Date: 20140620
  Receipt Date: 20140620
  Transmission Date: 20141212
  Serious: Yes (Death, Hospitalization, Other)
  Sender: FDA-Public Use
  Company Number: PHHY2014RO073381

PATIENT
  Age: 49 Year
  Sex: Female

DRUGS (18)
  1. DOXORUBICIN [Suspect]
     Indication: ADULT T-CELL LYMPHOMA/LEUKAEMIA
  2. ETOPOSIDE [Suspect]
     Indication: ADULT T-CELL LYMPHOMA/LEUKAEMIA
  3. CARBOPLATIN [Suspect]
     Indication: ADULT T-CELL LYMPHOMA/LEUKAEMIA
  4. VINCRISTINE [Suspect]
     Indication: ADULT T-CELL LYMPHOMA/LEUKAEMIA
  5. PREDNISONE [Suspect]
     Indication: ADULT T-CELL LYMPHOMA/LEUKAEMIA
  6. VINDESINE [Suspect]
     Indication: ADULT T-CELL LYMPHOMA/LEUKAEMIA
  7. CYCLOPHOSPHAMIDE [Suspect]
     Indication: ADULT T-CELL LYMPHOMA/LEUKAEMIA
  8. RANIMUSTINE [Suspect]
     Indication: ADULT T-CELL LYMPHOMA/LEUKAEMIA
  9. ZIDOVUDINE [Suspect]
     Indication: ADULT T-CELL LYMPHOMA/LEUKAEMIA
     Dosage: 600 MG, DAILY
  10. ZIDOVUDINE [Suspect]
     Indication: HUMAN T-CELL LYMPHOTROPIC VIRUS INFECTION
  11. INTERFERON [Suspect]
     Dosage: 9 OT, (9 MU/DAY)
  12. ACICLOVIR [Concomitant]
     Indication: PROPHYLAXIS
  13. ACICLOVIR [Concomitant]
     Indication: ADULT T-CELL LYMPHOMA/LEUKAEMIA
  14. ACICLOVIR [Concomitant]
     Indication: HUMAN T-CELL LYMPHOTROPIC VIRUS INFECTION
  15. COMBIVIR [Concomitant]
     Indication: ADULT T-CELL LYMPHOMA/LEUKAEMIA
  16. COMBIVIR [Concomitant]
     Indication: HUMAN T-CELL LYMPHOTROPIC VIRUS INFECTION
  17. TRIMETHOPRIM SULFAMETHOXAZOLE [Concomitant]
     Indication: PROPHYLAXIS
  18. FLUCOVIM [Concomitant]
     Indication: PROPHYLAXIS

REACTIONS (24)
  - Adult T-cell lymphoma/leukaemia [Fatal]
  - Human T-cell lymphotropic virus infection [Fatal]
  - Malignant neoplasm progression [Fatal]
  - Weight decreased [Fatal]
  - Cough [Fatal]
  - Dyspnoea [Fatal]
  - Hypoproteinaemia [Fatal]
  - Hypoalbuminaemia [Fatal]
  - Polyserositis [Fatal]
  - Acute lung injury [Fatal]
  - Conjunctival hyperaemia [Fatal]
  - Ulcerative keratitis [Fatal]
  - Lymphocyte count increased [Fatal]
  - Blood lactate dehydrogenase increased [Fatal]
  - Skin lesion [Fatal]
  - General physical health deterioration [Fatal]
  - Lymphadenopathy [Fatal]
  - Lymphocytic infiltration [Fatal]
  - Bronchopneumopathy [Fatal]
  - Bone marrow failure [Not Recovered/Not Resolved]
  - Leukopenia [Not Recovered/Not Resolved]
  - Thrombocytopenia [Not Recovered/Not Resolved]
  - Drug ineffective [Unknown]
  - Drug effect incomplete [Unknown]
